FAERS Safety Report 10034407 (Version 1)
Quarter: 2014Q1

REPORT INFORMATION
  Report Type: Spontaneous
  Country: US (occurrence: US)
  Receive Date: 20140325
  Receipt Date: 20140325
  Transmission Date: 20141002
  Serious: Yes (Hospitalization)
  Sender: FDA-Public Use
  Company Number: US-MYLANLABS-2014S1005689

PATIENT
  Age: 82 Year
  Sex: Male

DRUGS (13)
  1. SUNITINIB [Suspect]
     Indication: RENAL CELL CARCINOMA
     Dosage: FOR 14 DAYS, WITH 7-DAY BREAKS IN BETWEEN CYCLES
     Route: 065
  2. COLCHICINE [Interacting]
     Indication: GOUT
     Dosage: 0.6MG DAILY FOR SEVERAL YEARS
     Route: 065
  3. COLCHICINE [Interacting]
     Indication: GOUT
     Dosage: 0.6MG DAILY FOR SEVERAL YEARS
     Route: 065
  4. COLCHICINE [Interacting]
     Indication: GOUT
     Dosage: 8 TABLETS/DAY FOR 7 DAYS (TOTAL 4.8MG/DAY); THEN 6 TABLETS/DAY
     Route: 065
  5. COLCHICINE [Interacting]
     Indication: GOUT
     Dosage: 8 TABLETS/DAY FOR 7 DAYS (TOTAL 4.8MG/DAY); THEN 6 TABLETS/DAY
     Route: 065
  6. COLCHICINE [Interacting]
     Indication: GOUT
     Dosage: 6 TABLETS/DAY FOR 2 DAYS; THEN ONE TABLET/DAY
     Route: 065
  7. COLCHICINE [Interacting]
     Indication: GOUT
     Dosage: 6 TABLETS/DAY FOR 2 DAYS; THEN ONE TABLET/DAY
     Route: 065
  8. COLCHICINE [Interacting]
     Indication: GOUT
     Dosage: ONE TABLET ON DAY OF PRESENTATION
     Route: 065
  9. COLCHICINE [Interacting]
     Indication: GOUT
     Dosage: ONE TABLET ON DAY OF PRESENTATION
     Route: 065
  10. DILTIAZEM [Concomitant]
     Route: 065
  11. FUROSEMIDE [Concomitant]
     Route: 065
  12. LEVOTHYROXINE SODIUM [Concomitant]
     Route: 065
  13. RABEPRAZOLE [Concomitant]
     Route: 065

REACTIONS (9)
  - Diarrhoea [Unknown]
  - Pneumonia [Unknown]
  - Metabolic acidosis [Unknown]
  - Left ventricular dysfunction [Unknown]
  - Hypokalaemia [Unknown]
  - Hypomagnesaemia [Unknown]
  - Toxicity to various agents [Unknown]
  - Drug interaction [Unknown]
  - Thrombocytopenia [Unknown]
